FAERS Safety Report 11563596 (Version 2)
Quarter: 2015Q4

REPORT INFORMATION
  Report Type: Spontaneous
  Country: FI (occurrence: FI)
  Receive Date: 20150928
  Receipt Date: 20151005
  Transmission Date: 20160304
  Serious: Yes (Other)
  Sender: FDA-Public Use
  Company Number: FI-UCBSA-2015030216

PATIENT
  Age: 38 Year
  Sex: Female

DRUGS (3)
  1. CIMZIA [Suspect]
     Active Substance: CERTOLIZUMAB PEGOL
     Indication: SPONDYLOARTHROPATHY
     Dosage: 200 MG, EV 2 WEEKS(QOW)
     Dates: start: 20150506, end: 20150908
  2. ARAVA [Concomitant]
     Active Substance: LEFLUNOMIDE
     Indication: SPONDYLOARTHROPATHY
     Dosage: 20 MG, ONCE DAILY (QD)
     Route: 048
     Dates: start: 2012
  3. SALAZOPYRIN [Concomitant]
     Active Substance: SULFASALAZINE
     Indication: SPONDYLOARTHROPATHY
     Dosage: 2000 MG, ONCE DAILY (QD)
     Route: 048
     Dates: start: 2012

REACTIONS (1)
  - Pustular psoriasis [Not Recovered/Not Resolved]

NARRATIVE: CASE EVENT DATE: 20150601
